FAERS Safety Report 5840034-3 (Version None)
Quarter: 2008Q3

REPORT INFORMATION
  Report Type: 
  Country: None (occurrence: None)
  Receive Date: 20080811
  Receipt Date: 20071211
  Transmission Date: 20090109
  Serious: Yes (Other)
  Sender: FDA-Public Use
  Company Number: US-BAYER-200713771BWH

PATIENT
  Sex: Female

DRUGS (2)
  1. TRASYLOL [Suspect]
     Indication: CARDIAC OPERATION
     Dosage: UNIT DOSE: 10000 KIU
     Route: 042
  2. TRASYLOL [Suspect]
     Route: 042

REACTIONS (2)
  - HYPERSENSITIVITY [None]
  - HYPOTENSION [None]
